FAERS Safety Report 5601828-2 (Version None)
Quarter: 2008Q1

REPORT INFORMATION
  Report Type: 
  Country: None (occurrence: None)
  Receive Date: 20080124
  Receipt Date: 20080116
  Transmission Date: 20080703
  Serious: Yes (Hospitalization, Other)
  Sender: FDA-Public Use
  Company Number: JP-PFIZER INC-2007093804

PATIENT
  Age: 76 Year
  Sex: Female

DRUGS (1)
  1. MEDROL [Suspect]
     Route: 048
     Dates: start: 20071017, end: 20070101

REACTIONS (2)
  - CEREBRAL INFARCTION [None]
  - GASTROINTESTINAL HAEMORRHAGE [None]
